FAERS Safety Report 6950117-2 (Version None)
Quarter: 2010Q3

REPORT INFORMATION
  Report Type: 
  Country: None (occurrence: None)
  Receive Date: 20100828
  Receipt Date: 20100216
  Transmission Date: 20110219
  Serious: No
  Sender: FDA-Public Use
  Company Number: US-ABBOTT-10P-163-0621799-00

PATIENT
  Sex: Male
  Weight: 108.96 kg

DRUGS (12)
  1. NIASPAN [Suspect]
     Indication: HIGH DENSITY LIPOPROTEIN DECREASED
     Dates: start: 20091112
  2. NIASPAN [Suspect]
     Indication: LOW DENSITY LIPOPROTEIN INCREASED
  3. ASPIRIN [Suspect]
     Indication: PROPHYLAXIS
     Dates: start: 20100101
  4. ASPIRIN [Suspect]
     Indication: FLUSHING
  5. KLOR-CON [Concomitant]
     Indication: ELECTROLYTE SUBSTITUTION THERAPY
  6. FUROSEMIDE [Concomitant]
     Indication: DIURETIC THERAPY
  7. METOPROLOL [Concomitant]
     Indication: HYPERTENSION
  8. LISINOPRIL [Concomitant]
     Indication: HYPERTENSION
  9. FLOMAX [Concomitant]
     Indication: PROSTATIC DISORDER
  10. ASPIRIN [Concomitant]
     Indication: PRODUCT USED FOR UNKNOWN INDICATION
  11. MULTIPLE VITAMINS [Concomitant]
     Indication: VITAMIN SUPPLEMENTATION
  12. CO Q10 [Concomitant]
     Indication: MEDICAL DIET

REACTIONS (6)
  - FEELING HOT [None]
  - FLUSHING [None]
  - INCORRECT DOSE ADMINISTERED [None]
  - MUSCULAR WEAKNESS [None]
  - VASODILATATION [None]
  - WRONG DRUG ADMINISTERED [None]
